FAERS Safety Report 10479730 (Version 1)
Quarter: 2014Q3

REPORT INFORMATION
  Report Type: Spontaneous
  Country: ES (occurrence: ES)
  Receive Date: 20140927
  Receipt Date: 20140927
  Transmission Date: 20150326
  Serious: Yes (Other)
  Sender: FDA-Public Use
  Company Number: PHHY2014ES122011

PATIENT
  Age: 75 Year
  Sex: Male

DRUGS (3)
  1. IOHEXOL [Suspect]
     Active Substance: IOHEXOL
  2. OXALIPLATIN. [Suspect]
     Active Substance: OXALIPLATIN
     Indication: COLORECTAL CANCER METASTATIC
  3. CAPECITABINE [Concomitant]
     Active Substance: CAPECITABINE
     Indication: COLORECTAL CANCER METASTATIC

REACTIONS (7)
  - Liver function test abnormal [Recovered/Resolved]
  - Drug reaction with eosinophilia and systemic symptoms [Unknown]
  - Erythema [Unknown]
  - Drug hypersensitivity [Unknown]
  - Rash [Unknown]
  - Eosinophilia [Recovered/Resolved]
  - Induration [Unknown]
